FAERS Safety Report 9303801 (Version 1)
Quarter: 2013Q2

REPORT INFORMATION
  Report Type: Spontaneous
  Country: US (occurrence: None)
  Receive Date: 20130521
  Receipt Date: 20130521
  Transmission Date: 20140414
  Serious: Yes (Hospitalization)
  Sender: FDA-Public Use
  Company Number: None

PATIENT
  Age: 41 Year
  Sex: Male
  Weight: 75.7 kg

DRUGS (2)
  1. PROMETHAZINE [Suspect]
     Dosage: 25 MG PRN RECTAL
     Route: 054
     Dates: start: 20130311, end: 20130312
  2. PROMETHAZINE [Suspect]
     Dosage: 12.5 MG PRN PO
     Route: 048
     Dates: start: 20130311, end: 20130312

REACTIONS (9)
  - Confusional state [None]
  - Depression [None]
  - Hallucination [None]
  - Parkinsonism [None]
  - Tardive dyskinesia [None]
  - Tremor [None]
  - Agitation [None]
  - Delirium [None]
  - Cogwheel rigidity [None]
